FAERS Safety Report 20175979 (Version 1)
Quarter: 2021Q4

REPORT INFORMATION
  Report Type: Spontaneous
  Country: US (occurrence: None)
  Receive Date: 20211210
  Receipt Date: 20211210
  Transmission Date: 20220304
  Serious: Yes (Death)
  Sender: FDA-Public Use
  Company Number: None

PATIENT
  Age: 69 Year
  Sex: Male

DRUGS (1)
  1. BAMLANIVIMAB\ETESEVIMAB [Suspect]
     Active Substance: BAMLANIVIMAB\ETESEVIMAB
     Indication: COVID-19
     Dates: start: 20211127, end: 20211127

REACTIONS (4)
  - Hypernatraemia [None]
  - Dysphagia [None]
  - Acute kidney injury [None]
  - Hospice care [None]

NARRATIVE: CASE EVENT DATE: 20211201
